FAERS Safety Report 19604219 (Version 3)
Quarter: 2021Q3

REPORT INFORMATION
  Report Type: Spontaneous
  Country: US (occurrence: US)
  Receive Date: 20210723
  Receipt Date: 20210818
  Transmission Date: 20211014
  Serious: Yes (Hospitalization, Other)
  Sender: FDA-Public Use
  Company Number: US-MALLINCKRODT PHARMACEUTICALS-T202103138

PATIENT
  Sex: Female

DRUGS (8)
  1. H.P. ACTHAR [Suspect]
     Active Substance: CORTICOTROPIN
     Dosage: 0.07 MILLILITER (5.6 UNITS), QD,DAY 18 TO 20
     Route: 030
     Dates: start: 202107, end: 202107
  2. DIAZEPAM. [Concomitant]
     Active Substance: DIAZEPAM
     Indication: PRODUCT USED FOR UNKNOWN INDICATION
     Dosage: UNK
     Route: 065
  3. H.P. ACTHAR [Suspect]
     Active Substance: CORTICOTROPIN
     Indication: INFANTILE SPASMS
     Dosage: 0.7 MILLILITER, QD,DAY 1 TO 14
     Route: 030
     Dates: start: 20210708, end: 202107
  4. H.P. ACTHAR [Suspect]
     Active Substance: CORTICOTROPIN
     Dosage: 0.14 MILLILITER (11.5 UNITS), QD,DAY 15 TO 17
     Route: 030
     Dates: start: 202107, end: 202107
  5. H.P. ACTHAR [Suspect]
     Active Substance: CORTICOTROPIN
     Dosage: 0.05 MILLILITER (3.75 UNITS), EVERY OTHER DAY,DAY 24 TO 29
     Route: 030
     Dates: start: 2021
  6. POLY?VI?SOL WITH IRON [Concomitant]
     Active Substance: IRON\VITAMINS
     Indication: PRODUCT USED FOR UNKNOWN INDICATION
     Dosage: UNK
     Route: 065
  7. PHENOBARBITAL. [Concomitant]
     Active Substance: PHENOBARBITAL
     Indication: PRODUCT USED FOR UNKNOWN INDICATION
     Dosage: 20MG/5 ML
     Route: 065
  8. H.P. ACTHAR [Suspect]
     Active Substance: CORTICOTROPIN
     Dosage: 0.05 MILLILITER (3.75 UNITS), QD,DAY 21 TO 23
     Route: 030
     Dates: start: 202107, end: 202107

REACTIONS (10)
  - Product dose omission issue [Unknown]
  - Crying [Unknown]
  - Cardiac septal defect [Unknown]
  - Infantile spasms [Unknown]
  - Condition aggravated [Unknown]
  - Faeces discoloured [Unknown]
  - Cardiac valve disease [Unknown]
  - Hunger [Unknown]
  - Haematochezia [Recovered/Resolved]
  - Injection site pain [Recovering/Resolving]

NARRATIVE: CASE EVENT DATE: 2021
